FAERS Safety Report 5032611-7 (Version None)
Quarter: 2006Q2

REPORT INFORMATION
  Report Type: 
  Country: None (occurrence: None)
  Receive Date: 20060620
  Receipt Date: 20060620
  Transmission Date: 20061013
  Serious: No
  Sender: FDA-Public Use
  Company Number: None

PATIENT
  Sex: Female
  Weight: 109.3169 kg

DRUGS (2)
  1. ZOLPIDEM TARTRATE [Suspect]
     Indication: INSOMNIA
     Dosage: 12.5MG
  2. TRIAZOLAM [Suspect]
     Indication: INSOMNIA
     Dosage: 0.125MG

REACTIONS (1)
  - DRUG INEFFECTIVE [None]
